FAERS Safety Report 7379233-0 (Version None)
Quarter: 2011Q1

REPORT INFORMATION
  Report Type: 
  Country: None (occurrence: None)
  Receive Date: 20110328
  Receipt Date: 20110318
  Transmission Date: 20110831
  Serious: Yes (Other)
  Sender: FDA-Public Use
  Company Number: US-AMGEN-USASP2011015147

PATIENT
  Sex: Female

DRUGS (1)
  1. SENSIPAR [Suspect]
     Indication: HYPERPARATHYROIDISM SECONDARY
     Dates: end: 20110301

REACTIONS (9)
  - BACK PAIN [None]
  - BLOOD PARATHYROID HORMONE INCREASED [None]
  - COUGH [None]
  - SWELLING FACE [None]
  - SNORING [None]
  - SWOLLEN TONGUE [None]
  - OEDEMA PERIPHERAL [None]
  - ABDOMINAL DISTENSION [None]
  - EYE SWELLING [None]
